FAERS Safety Report 9471497 (Version 2)
Quarter: 2013Q3

REPORT INFORMATION
  Report Type: Spontaneous
  Country: US (occurrence: US)
  Receive Date: 20130822
  Receipt Date: 20130926
  Transmission Date: 20140515
  Serious: No
  Sender: FDA-Public Use
  Company Number: US-PFIZER INC-2013240452

PATIENT
  Age: 73 Year
  Sex: Female
  Weight: 70.75 kg

DRUGS (4)
  1. CELEBREX [Suspect]
     Indication: ARTHRITIS
     Dosage: 200 MG, 1X/DAY
     Route: 048
     Dates: start: 2003
  2. CELEBREX [Suspect]
     Dosage: 100 MG, 1X/DAY
     Route: 048
  3. ASPIRIN [Concomitant]
     Dosage: UNK
  4. PLAVIX [Concomitant]
     Dosage: UNK

REACTIONS (2)
  - Gastrooesophageal reflux disease [Not Recovered/Not Resolved]
  - Pain in extremity [Unknown]
